FAERS Safety Report 23668427 (Version 1)
Quarter: 2024Q1

REPORT INFORMATION
  Report Type: Spontaneous
  Country: TR (occurrence: TR)
  Receive Date: 20240325
  Receipt Date: 20240325
  Transmission Date: 20240410
  Serious: Yes (Death, Other)
  Sender: FDA-Public Use
  Company Number: TR-AMGEN-TURSP2024058474

PATIENT
  Age: 213 Month
  Sex: Female

DRUGS (3)
  1. BEVACIZUMAB [Suspect]
     Active Substance: BEVACIZUMAB
     Indication: Brain stem glioma
     Dosage: 10 MILLIGRAM/KILOGRAM, QD, ON DAYS 1 AND 15
     Route: 065
  2. TEMOZOLOMIDE [Concomitant]
     Active Substance: TEMOZOLOMIDE
     Indication: Brain stem glioma
     Dosage: 150 MILLIGRAM/SQ. METER, QD, ON DAYS 1-5
     Route: 065
  3. IRINOTECAN [Concomitant]
     Active Substance: IRINOTECAN
     Dosage: 125 MILLIGRAM/SQ. METER, QD, ON DAY 1 AND 15
     Route: 065

REACTIONS (3)
  - Death [Fatal]
  - Brain stem glioma [Unknown]
  - Off label use [Unknown]
